FAERS Safety Report 24916244 (Version 1)
Quarter: 2025Q1

REPORT INFORMATION
  Report Type: Spontaneous
  Country: US (occurrence: None)
  Receive Date: 20250131
  Receipt Date: 20250131
  Transmission Date: 20250409
  Serious: Yes (Hospitalization)
  Sender: FDA-CTU
  Company Number: None

PATIENT
  Age: 69 Year
  Sex: Male
  Weight: 60 kg

DRUGS (1)
  1. EMPAGLIFLOZIN [Suspect]
     Active Substance: EMPAGLIFLOZIN
     Indication: Diabetes mellitus
     Dosage: FREQUENCY : DAILY;?
     Route: 048

REACTIONS (8)
  - Diabetic ketoacidosis [None]
  - Hyperglycaemia [None]
  - Bacterial infection [None]
  - Hypophagia [None]
  - Hypotension [None]
  - Acute kidney injury [None]
  - Mental status changes [None]
  - Therapy cessation [None]

NARRATIVE: CASE EVENT DATE: 20240826
